FAERS Safety Report 18296806 (Version 3)
Quarter: 2020Q4

REPORT INFORMATION
  Report Type: Spontaneous
  Country: JP (occurrence: JP)
  Receive Date: 20200922
  Receipt Date: 20201021
  Transmission Date: 20210113
  Serious: Yes (Hospitalization, Other)
  Sender: FDA-Public Use
  Company Number: JP-PFIZER INC-2020360208

PATIENT
  Age: 85 Year
  Sex: Male
  Weight: 53.7 kg

DRUGS (2)
  1. INLYTA [Suspect]
     Active Substance: AXITINIB
     Dosage: 5 MG, 2X/DAY
     Route: 048
     Dates: start: 20200518, end: 20200824
  2. NIVOLUMAB [Suspect]
     Active Substance: NIVOLUMAB
     Dosage: 240 (UNKNOWN UNIT), 1X/DAY
     Route: 041
     Dates: start: 20200902

REACTIONS (7)
  - Interstitial lung disease [Recovering/Resolving]
  - Neoplasm progression [Unknown]
  - Blood lactate dehydrogenase decreased [Recovering/Resolving]
  - C-reactive protein increased [Recovered/Resolved]
  - Eosinophil count decreased [Unknown]
  - Pleural effusion [Unknown]
  - Lymphocyte count decreased [Recovering/Resolving]

NARRATIVE: CASE EVENT DATE: 20200824
